FAERS Safety Report 26144806 (Version 1)
Quarter: 2025Q4

REPORT INFORMATION
  Report Type: Spontaneous
  Country: US (occurrence: None)
  Receive Date: 20251210
  Receipt Date: 20251210
  Transmission Date: 20260118
  Serious: No
  Sender: FDA-CTU
  Company Number: None

PATIENT
  Age: 51 Year
  Sex: Female

DRUGS (1)
  1. OTEZLA [Suspect]
     Active Substance: APREMILAST
     Dosage: FREQUENCY : TWICE A DAY;
     Route: 048
     Dates: start: 20251110

REACTIONS (3)
  - Muscle spasms [None]
  - Paraesthesia [None]
  - Diabetes mellitus [None]
